FAERS Safety Report 21773261 (Version 1)
Quarter: 2022Q4

REPORT INFORMATION
  Report Type: Report from Study
  Country: US (occurrence: US)
  Receive Date: 20221223
  Receipt Date: 20221223
  Transmission Date: 20230113
  Serious: No
  Sender: FDA-Public Use
  Company Number: US-ABBVIE-4209258

PATIENT
  Age: 33 Year
  Sex: Female
  Weight: 81.646 kg

DRUGS (4)
  1. HUMIRA [Suspect]
     Active Substance: ADALIMUMAB
     Indication: Crohn^s disease
     Dosage: IN 2022, DISCONTINUED THE THERAPY
     Route: 058
     Dates: start: 20220809
  2. HUMIRA [Suspect]
     Active Substance: ADALIMUMAB
     Dosage: IN 2022, THIS REGIMEN WAS STARTED
     Route: 058
  3. CITALOPRAM [Concomitant]
     Active Substance: CITALOPRAM HYDROBROMIDE
     Indication: Depression
  4. Welbutirin [Concomitant]
     Indication: Attention deficit hyperactivity disorder

REACTIONS (4)
  - Incorrect dose administered [Unknown]
  - Nausea [Recovering/Resolving]
  - Abdominal pain [Recovering/Resolving]
  - Device issue [Unknown]

NARRATIVE: CASE EVENT DATE: 20221118
